FAERS Safety Report 6575463-6 (Version None)
Quarter: 2010Q1

REPORT INFORMATION
  Report Type: 
  Country: None (occurrence: None)
  Receive Date: 20100208
  Receipt Date: 20100208
  Transmission Date: 20100710
  Serious: Yes (Hospitalization)
  Sender: FDA-Public Use
  Company Number: None

PATIENT
  Sex: Female
  Weight: 67.1324 kg

DRUGS (1)
  1. JOLESSA 0.15MG/0.03MG BARR LABS [Suspect]
     Indication: DYSMENORRHOEA
     Dosage: 1 TABLET DAILY PO
     Route: 048

REACTIONS (1)
  - PULMONARY EMBOLISM [None]
